FAERS Safety Report 4368312-8 (Version None)
Quarter: 2004Q2

REPORT INFORMATION
  Report Type: 
  Country: None (occurrence: None)
  Receive Date: 20040525
  Receipt Date: 20040510
  Transmission Date: 20050107
  Serious: Yes (Hospitalization, Disabling)
  Sender: FDA-Public Use
  Company Number: NSADSS2001012222

PATIENT
  Age: 59 Year
  Sex: Female
  Weight: 51.7101 kg

DRUGS (21)
  1. REMICADE [Suspect]
     Indication: RHEUMATOID ARTHRITIS
     Dosage: SEE IMAGE
     Route: 041
     Dates: start: 20000630, end: 20000630
  2. REMICADE [Suspect]
     Indication: RHEUMATOID ARTHRITIS
     Dosage: SEE IMAGE
     Route: 041
     Dates: start: 20000713, end: 20000713
  3. REMICADE [Suspect]
     Indication: RHEUMATOID ARTHRITIS
     Dosage: SEE IMAGE
     Route: 041
     Dates: start: 20000814, end: 20000814
  4. REMICADE [Suspect]
     Indication: RHEUMATOID ARTHRITIS
     Dosage: SEE IMAGE
     Route: 041
     Dates: start: 20001010, end: 20001010
  5. REMICADE [Suspect]
     Indication: RHEUMATOID ARTHRITIS
     Dosage: SEE IMAGE
     Route: 041
     Dates: start: 20001205, end: 20001205
  6. REMICADE [Suspect]
     Indication: RHEUMATOID ARTHRITIS
     Dosage: SEE IMAGE
     Route: 041
     Dates: start: 20010130, end: 20010130
  7. METHOTREXATE SODIUM [Concomitant]
  8. DELTASONE [Concomitant]
  9. AZULFIDINE [Concomitant]
  10. FOLIC ACID [Concomitant]
  11. PREMARIN [Concomitant]
  12. ISONIAZID [Concomitant]
  13. RIFAMPICIN [Concomitant]
  14. PYRIDOXINE HCL TAB [Concomitant]
  15. PYRAZINAMIDE [Concomitant]
  16. PEPCID [Concomitant]
  17. MVI (MULTIVITAMINS) [Concomitant]
  18. MYAMBUTOL [Concomitant]
  19. MOTRIN [Concomitant]
  20. CLARITHROMYCIN [Concomitant]
  21. LEVAQUIN [Concomitant]

REACTIONS (31)
  - ALANINE AMINOTRANSFERASE INCREASED [None]
  - ASPARTATE AMINOTRANSFERASE INCREASED [None]
  - BLOOD ALKALINE PHOSPHATASE INCREASED [None]
  - BLOOD BILIRUBIN INCREASED [None]
  - BREAST CYST [None]
  - BRONCHIECTASIS [None]
  - BRONCHITIS [None]
  - DRUG INEFFECTIVE [None]
  - EMPHYSEMA [None]
  - FAILURE OF IMPLANT [None]
  - HAEMANGIOMA OF LIVER [None]
  - HAEMATOCRIT DECREASED [None]
  - HAEMOGLOBIN DECREASED [None]
  - INFLUENZA [None]
  - LIVER FUNCTION TEST ABNORMAL [None]
  - METATARSALGIA [None]
  - NECROTISING GRANULOMATOUS LYMPHADENITIS [None]
  - OSTEOARTHRITIS [None]
  - PNEUMONIA [None]
  - SPUTUM CULTURE POSITIVE [None]
  - SPUTUM DISCOLOURED [None]
  - TOE AMPUTATION [None]
  - TOE DEFORMITY [None]
  - TUBERCULOSIS [None]
  - TUBERCULOSIS OF PERIPHERAL LYMPH NODES [None]
  - URINARY TRACT INFECTION [None]
  - VAGINAL BURNING SENSATION [None]
  - VAGINAL DISCHARGE [None]
  - VAGINAL ODOUR [None]
  - VAGINITIS BACTERIAL [None]
  - WHITE BLOOD CELL COUNT INCREASED [None]
